FAERS Safety Report 5703762-6 (Version None)
Quarter: 2008Q2

REPORT INFORMATION
  Report Type: 
  Country: None (occurrence: None)
  Receive Date: 20080413
  Receipt Date: 20080331
  Transmission Date: 20081010
  Serious: Yes (Other)
  Sender: FDA-Public Use
  Company Number: PHHO2007MX16499

PATIENT
  Age: 49 Year
  Sex: Female

DRUGS (6)
  1. ACLASTA [Suspect]
     Indication: OSTEOPOROSIS
     Dosage: 5MG/100ML
     Route: 042
     Dates: start: 20070701
  2. TAFIL [Concomitant]
     Dosage: HALF TABLET, BID
  3. LYRICA [Concomitant]
     Dosage: 1 DF, QD
  4. FLUOXETINE [Concomitant]
     Dosage: 1/2 TABLET/DAY
  5. PARACETAMOL [Concomitant]
     Indication: HEADACHE
  6. CALCIUM [Concomitant]
     Indication: OSTEOPOROSIS

REACTIONS (4)
  - BACK PAIN [None]
  - IMPAIRED HEALING [None]
  - MUSCULAR WEAKNESS [None]
  - SURGERY [None]
